FAERS Safety Report 12557387 (Version 2)
Quarter: 2016Q3

REPORT INFORMATION
  Report Type: Spontaneous
  Country: IR (occurrence: IR)
  Receive Date: 20160714
  Receipt Date: 20160720
  Transmission Date: 20161109
  Serious: Yes (Hospitalization)
  Sender: FDA-Public Use
  Company Number: IR-MYLANLABS-2016M1029123

PATIENT

DRUGS (1)
  1. VALPROIC ACID. [Suspect]
     Active Substance: VALPROIC ACID
     Indication: PRODUCT USED FOR UNKNOWN INDICATION
     Dosage: 200 TABLETS OF 80MG
     Route: 048

REACTIONS (7)
  - Intentional overdose [Unknown]
  - Cerebral disorder [Recovered/Resolved]
  - Ammonia increased [Recovered/Resolved]
  - Brain oedema [Recovered/Resolved]
  - Toxicity to various agents [Unknown]
  - Optic neuritis [Unknown]
  - Suicide attempt [Unknown]

NARRATIVE: CASE EVENT DATE: 20150701
